FAERS Safety Report 6419843-8 (Version None)
Quarter: 2009Q4

REPORT INFORMATION
  Report Type: 
  Country: None (occurrence: None)
  Receive Date: 20091029
  Receipt Date: 20091016
  Transmission Date: 20100525
  Serious: Yes (Hospitalization)
  Sender: FDA-Public Use
  Company Number: FR-ELI_LILLY_AND_COMPANY-FR200910004643

PATIENT
  Age: 79 Year
  Sex: Female

DRUGS (3)
  1. FORTEO [Suspect]
     Indication: OSTEOPOROSIS
     Dosage: 20 UG, DAILY (1/D)
     Dates: start: 20090402
  2. DURAGESIC-100 [Concomitant]
     Dosage: 12.5 MG, DAILY (1/D)
  3. TOPALGIC [Concomitant]
     Dosage: 150 MG, DAILY (1/D)

REACTIONS (1)
  - BACK PAIN [None]
